FAERS Safety Report 8841898 (Version 1)
Quarter: 2012Q4

REPORT INFORMATION
  Report Type: 
  Country: US (occurrence: US)
  Receive Date: 20121016
  Receipt Date: 20121016
  Transmission Date: 20130627
  Serious: Yes (Hospitalization)
  Sender: FDA-Public Use
  Company Number: US-BAYER-2012-106400

PATIENT
  Age: 17 Year
  Sex: Female

DRUGS (4)
  1. YAZ [Suspect]
     Indication: ENDOMETRIOSIS
  2. PROVIGIL [Concomitant]
  3. DOXYCYCLINE [Concomitant]
     Indication: ACNE
  4. LUPRON [Concomitant]
     Indication: ENDOMETRIOSIS

REACTIONS (1)
  - Pulmonary embolism [None]
